FAERS Safety Report 22055866 (Version 7)
Quarter: 2024Q1

REPORT INFORMATION
  Report Type: Report from Study
  Country: US (occurrence: US)
  Receive Date: 20230302
  Receipt Date: 20240304
  Transmission Date: 20240409
  Serious: Yes (Hospitalization)
  Sender: FDA-Public Use
  Company Number: US-002147023-NVSC2023US048309

PATIENT
  Age: 34 Year
  Sex: Male

DRUGS (1)
  1. KESIMPTA [Suspect]
     Active Substance: OFATUMUMAB
     Indication: Relapsing multiple sclerosis
     Dosage: 20 MG
     Route: 058
     Dates: start: 20230119

REACTIONS (5)
  - Stress [Unknown]
  - Hemiparesis [Unknown]
  - Injection site extravasation [Recovered/Resolved]
  - Product storage error [Unknown]
  - Fall [Unknown]

NARRATIVE: CASE EVENT DATE: 20230119
